FAERS Safety Report 14458063 (Version 3)
Quarter: 2018Q1

REPORT INFORMATION
  Report Type: Spontaneous
  Country: ES (occurrence: ES)
  Receive Date: 20180130
  Receipt Date: 20180208
  Transmission Date: 20180509
  Serious: Yes (Other)
  Sender: FDA-Public Use
  Company Number: ES-PFIZER INC-2018032318

PATIENT
  Age: 61 Year
  Sex: Female

DRUGS (2)
  1. CARBOPLATIN. [Suspect]
     Active Substance: CARBOPLATIN
     Indication: INVASIVE DUCTAL BREAST CARCINOMA
     Dosage: STANDARD DOSE, CYCLIC (CARBOPLATIN AREA UNDER THE CURVE 6 [AUC6], EVERY 21 DAYS)
  2. CARBOPLATIN. [Suspect]
     Active Substance: CARBOPLATIN
     Indication: METASTASES TO CENTRAL NERVOUS SYSTEM

REACTIONS (5)
  - Anaemia [Unknown]
  - Optic atrophy [Unknown]
  - Thrombocytopenia [Unknown]
  - Papilloedema [Recovered/Resolved]
  - Haemorrhage [Recovered/Resolved]
